FAERS Safety Report 23368282 (Version 3)
Quarter: 2024Q1

REPORT INFORMATION
  Report Type: Spontaneous
  Country: PT (occurrence: PT)
  Receive Date: 20240105
  Receipt Date: 20240213
  Transmission Date: 20240410
  Serious: Yes (Hospitalization, Other)
  Sender: FDA-Public Use
  Company Number: PT-Accord-398887

PATIENT
  Age: 57 Year
  Sex: Female

DRUGS (3)
  1. QUETIAPINE [Suspect]
     Active Substance: QUETIAPINE
     Indication: Product used for unknown indication
     Dosage: STRENGTH: 50 MG
     Route: 048
  2. ETHYL LOFLAZEPATE [Concomitant]
     Active Substance: ETHYL LOFLAZEPATE
     Indication: Persistent depressive disorder
     Dosage: 150MG EXTENDED-RELEASE DAILY
  3. TRAZODONE [Concomitant]
     Active Substance: TRAZODONE HYDROCHLORIDE
     Indication: Persistent depressive disorder
     Dosage: EXTENDED-RELEASE

REACTIONS (4)
  - Electrocardiogram QT prolonged [Recovered/Resolved]
  - Intentional overdose [Unknown]
  - Ectopic atrial rhythm [Recovered/Resolved]
  - Suicide attempt [Unknown]
